FAERS Safety Report 5170814-1 (Version None)
Quarter: 2006Q4

REPORT INFORMATION
  Report Type: 
  Country: None (occurrence: None)
  Receive Date: 20061213
  Receipt Date: 20061014
  Transmission Date: 20070319
  Serious: Yes (Life-Threatening, Hospitalization, Disabling, Other)
  Sender: FDA-Public Use
  Company Number: 2006UW19875

PATIENT
  Age: 11018 Day
  Sex: Female

DRUGS (3)
  1. SEROQUEL [Suspect]
     Indication: BIPOLAR I DISORDER
     Dosage: ACUTE PHASE
     Route: 048
     Dates: start: 20060711
  2. SEROQUEL [Suspect]
     Dosage: CONTINUATION PHASE
     Route: 048
     Dates: start: 20060905, end: 20061014
  3. ALCOHOL [Suspect]

REACTIONS (8)
  - ALCOHOL USE [None]
  - BRAIN DEATH [None]
  - CARDIAC FAILURE [None]
  - INTENTIONAL OVERDOSE [None]
  - RENAL FAILURE [None]
  - RESPIRATORY ARREST [None]
  - RESPIRATORY FAILURE [None]
  - SUICIDE ATTEMPT [None]
